FAERS Safety Report 18146139 (Version 1)
Quarter: 2020Q3

REPORT INFORMATION
  Report Type: Spontaneous
  Country: US (occurrence: US)
  Receive Date: 20200813
  Receipt Date: 20200813
  Transmission Date: 20201103
  Serious: No
  Sender: FDA-Public Use
  Company Number: US-LUPIN PHARMACEUTICALS INC.-2020-00636

PATIENT
  Age: 1 Year
  Sex: Male
  Weight: 10.43 kg

DRUGS (1)
  1. FAMOTIDINE FOR ORAL SUSPENSION USP 40 MG/5ML [Suspect]
     Active Substance: FAMOTIDINE
     Indication: GASTROOESOPHAGEAL REFLUX DISEASE
     Dosage: UNK
     Route: 048
     Dates: start: 20200201

REACTIONS (2)
  - Dermatitis diaper [Not Recovered/Not Resolved]
  - Rash [Not Recovered/Not Resolved]

NARRATIVE: CASE EVENT DATE: 20200203
